FAERS Safety Report 17381260 (Version 1)
Quarter: 2020Q1

REPORT INFORMATION
  Report Type: Spontaneous
  Country: US (occurrence: US)
  Receive Date: 20200206
  Receipt Date: 20200206
  Transmission Date: 20200409
  Serious: No
  Sender: FDA-Public Use
  Company Number: None

PATIENT
  Sex: Male
  Weight: 114.75 kg

DRUGS (5)
  1. ABIRATERONE ACETATE. [Suspect]
     Active Substance: ABIRATERONE ACETATE
     Indication: PROSTATE CANCER
     Route: 048
     Dates: start: 20191017, end: 20200206
  2. PREDNISONE. [Suspect]
     Active Substance: PREDNISONE
     Indication: PRODUCT USED FOR UNKNOWN INDICATION
     Route: 048
     Dates: start: 20191017, end: 20200206
  3. BICALUTAMIDE 50MG [Concomitant]
     Active Substance: BICALUTAMIDE
  4. QUINAPRIL HCL 20MG [Concomitant]
  5. METOPROLOL SUCCINATE ER 100MG [Concomitant]

REACTIONS (1)
  - Disease progression [None]
